FAERS Safety Report 10189763 (Version 1)
Quarter: 2014Q2

REPORT INFORMATION
  Report Type: Spontaneous
  Country: US (occurrence: US)
  Receive Date: 20140522
  Receipt Date: 20140522
  Transmission Date: 20141212
  Serious: Yes (Other)
  Sender: FDA-Public Use
  Company Number: US-SA-2013SA112434

PATIENT
  Age: 75 Year
  Sex: Male
  Weight: 81 kg

DRUGS (9)
  1. LANTUS SOLOSTAR [Suspect]
     Indication: TYPE 2 DIABETES MELLITUS
     Dosage: DOSE:15 UNIT(S)
     Route: 051
     Dates: start: 20131026
  2. SOLOSTAR [Concomitant]
     Indication: TYPE 2 DIABETES MELLITUS
     Dates: start: 20131026
  3. AVODART [Concomitant]
     Indication: PROSTATOMEGALY
     Dates: start: 2009
  4. LIPITOR [Concomitant]
     Indication: PROSTATOMEGALY
     Dates: start: 2004
  5. CARVEDILOL [Concomitant]
     Indication: BLOOD CHOLESTEROL INCREASED
     Dates: start: 1993
  6. BENICAR [Concomitant]
     Indication: HYPERTENSION
     Dates: start: 2004
  7. TAMSULOSIN HYDROCHLORIDE [Concomitant]
     Indication: PROSTATOMEGALY
     Dates: start: 2004
  8. SYNTHROID [Concomitant]
     Dates: start: 1986
  9. ASPIRIN [Concomitant]
     Indication: THROMBOSIS PROPHYLAXIS
     Dates: start: 1993

REACTIONS (2)
  - Hypoglycaemia [Recovered/Resolved]
  - Blood glucose increased [Unknown]
